FAERS Safety Report 11021219 (Version 1)
Quarter: 2015Q2

REPORT INFORMATION
  Report Type: Spontaneous
  Country: US (occurrence: US)
  Receive Date: 20150413
  Receipt Date: 20150413
  Transmission Date: 20150821
  Serious: Yes (Life-Threatening, Hospitalization, Other)
  Sender: FDA-Public Use
  Company Number: PHEH2015US006946

PATIENT
  Age: 51 Year
  Sex: Female
  Weight: 84.6 kg

DRUGS (7)
  1. CLOZARIL [Suspect]
     Active Substance: CLOZAPINE
     Indication: PRODUCT USED FOR UNKNOWN INDICATION
     Dosage: 900 MG (300 MG IN AM AND 600 MG IN PM)
     Route: 065
     Dates: start: 20150220, end: 20150309
  2. GEODON [Concomitant]
     Active Substance: ZIPRASIDONE HYDROCHLORIDE\ZIPRASIDONE MESYLATE
     Indication: GENERALISED ANXIETY DISORDER
     Dosage: 80 MG, BID
     Route: 065
     Dates: start: 20150219, end: 20150309
  3. KLONOPIN [Concomitant]
     Active Substance: CLONAZEPAM
     Indication: ANXIETY
     Dosage: 0.25 MG, BID
     Route: 065
     Dates: start: 20150304, end: 20150309
  4. PHENYTOIN. [Concomitant]
     Active Substance: PHENYTOIN
     Indication: SEIZURE
     Dosage: 200 MG, TID
     Route: 065
     Dates: start: 20150219, end: 20150309
  5. SCOPOLAMINE [Concomitant]
     Active Substance: SCOPOLAMINE
     Indication: INCREASED BRONCHIAL SECRETION
     Dosage: 1.5 MG PATCH 972 HR.
     Route: 062
     Dates: start: 20150224, end: 20150309
  6. KEPPRA [Concomitant]
     Active Substance: LEVETIRACETAM
     Indication: SEIZURE
     Dosage: 750 MG
     Route: 065
     Dates: start: 20150219, end: 20150309
  7. GEODON [Concomitant]
     Active Substance: ZIPRASIDONE HYDROCHLORIDE\ZIPRASIDONE MESYLATE
     Indication: DEVELOPMENTAL DELAY

REACTIONS (6)
  - Bronchial secretion retention [Unknown]
  - Unresponsive to stimuli [Unknown]
  - Increased bronchial secretion [Unknown]
  - Atrial fibrillation [Unknown]
  - Pulseless electrical activity [Recovering/Resolving]
  - Aspiration [Unknown]

NARRATIVE: CASE EVENT DATE: 20150309
